FAERS Safety Report 25681867 (Version 2)
Quarter: 2025Q3

REPORT INFORMATION
  Report Type: Spontaneous
  Country: US (occurrence: US)
  Receive Date: 20250814
  Receipt Date: 20250917
  Transmission Date: 20251021
  Serious: No
  Sender: ABBVIE
  Company Number: US-ABBVIE-6415313

PATIENT
  Age: 69 Year
  Sex: Female
  Weight: 47.174 kg

DRUGS (1)
  1. UPADACITINIB [Suspect]
     Active Substance: UPADACITINIB
     Indication: Rheumatoid arthritis
     Route: 048
     Dates: start: 2025

REACTIONS (5)
  - Contusion [Unknown]
  - Malaise [Unknown]
  - Osteoporosis [Unknown]
  - Fatigue [Unknown]
  - Injury [Unknown]

NARRATIVE: CASE EVENT DATE: 20250101
